FAERS Safety Report 9009412 (Version 1)
Quarter: 2013Q1

REPORT INFORMATION
  Report Type: Spontaneous
  Country: IT (occurrence: IT)
  Receive Date: 20130111
  Receipt Date: 20130111
  Transmission Date: 20140127
  Serious: Yes (Hospitalization)
  Sender: FDA-Public Use
  Company Number: IT-EISAI INC-E3810-06181-SPO-IT

PATIENT
  Age: 50 Year
  Sex: Male

DRUGS (1)
  1. PARIET (RABEPRAZOLE) [Suspect]
     Indication: PRODUCT USED FOR UNKNOWN INDICATION
     Route: 048
     Dates: start: 20121120, end: 20121208

REACTIONS (2)
  - Gingival bleeding [Unknown]
  - Myalgia [Unknown]
